FAERS Safety Report 19866672 (Version 4)
Quarter: 2021Q4

REPORT INFORMATION
  Report Type: Report from Study
  Country: US (occurrence: US)
  Receive Date: 20210922
  Receipt Date: 20211109
  Transmission Date: 20220304
  Serious: No
  Sender: FDA-Public Use
  Company Number: NVSC2021US213599

PATIENT
  Sex: Female

DRUGS (2)
  1. COSENTYX [Suspect]
     Active Substance: SECUKINUMAB
     Indication: Product used for unknown indication
     Dosage: 300 MG, QW
     Route: 058
  2. COSENTYX [Suspect]
     Active Substance: SECUKINUMAB
     Dosage: 300 MG, QW
     Route: 058

REACTIONS (9)
  - Illness [Recovered/Resolved]
  - Stomatitis [Unknown]
  - Oropharyngeal pain [Unknown]
  - Vomiting [Unknown]
  - Weight decreased [Unknown]
  - Viral infection [Unknown]
  - Nausea [Unknown]
  - Headache [Recovering/Resolving]
  - Diarrhoea [Unknown]
